FAERS Safety Report 6619392-8 (Version None)
Quarter: 2010Q1

REPORT INFORMATION
  Report Type: 
  Country: None (occurrence: None)
  Receive Date: 20100309
  Receipt Date: 20100226
  Transmission Date: 20100710
  Serious: Yes (Other)
  Sender: FDA-Public Use
  Company Number: US-BIOGENIDEC-2010BI003912

PATIENT
  Age: 36 Year
  Sex: Female
  Weight: 113 kg

DRUGS (2)
  1. TYSABRI [Suspect]
     Indication: MULTIPLE SCLEROSIS
     Route: 042
     Dates: start: 20050114
  2. TYSABRI [Suspect]
     Route: 042
     Dates: start: 20080814

REACTIONS (1)
  - BASAL CELL CARCINOMA [None]
